FAERS Safety Report 13180942 (Version 1)
Quarter: 2017Q1

REPORT INFORMATION
  Report Type: Spontaneous
  Country: US (occurrence: US)
  Receive Date: 20170202
  Receipt Date: 20170202
  Transmission Date: 20170428
  Serious: No
  Sender: FDA-Public Use
  Company Number: US-SMITH AND NEPHEW, INC-2016SMT00332

PATIENT
  Sex: Female
  Weight: 52.15 kg

DRUGS (2)
  1. REGRANEX [Suspect]
     Active Substance: BECAPLERMIN
     Indication: WOUND
     Dosage: UNK UNK, 1X/DAY
     Route: 061
     Dates: start: 201603, end: 20160405
  2. UNSPECIFIED DIABETES PILLS [Concomitant]
     Indication: DIABETES MELLITUS
     Dosage: UNK

REACTIONS (4)
  - Application site pain [Recovered/Resolved]
  - Incorrect drug administration duration [Unknown]
  - Drug ineffective [Unknown]
  - Inappropriate schedule of drug administration [Unknown]

NARRATIVE: CASE EVENT DATE: 2016
